FAERS Safety Report 9351505 (Version 1)
Quarter: 2013Q2

REPORT INFORMATION
  Report Type: Spontaneous
  Country: FI (occurrence: FI)
  Receive Date: 20130617
  Receipt Date: 20130617
  Transmission Date: 20140414
  Serious: No
  Sender: FDA-Public Use
  Company Number: FI-MERCK-1306FIN005640

PATIENT
  Age: 64 Year
  Sex: Female

DRUGS (3)
  1. JANUVIA [Suspect]
     Indication: GLUCOSE TOLERANCE TEST ABNORMAL
     Dosage: UNK
     Dates: start: 2010, end: 201304
  2. JANUVIA [Suspect]
     Indication: HYPOGLYCAEMIA
  3. JANUVIA [Suspect]
     Indication: GLYCOSYLATED HAEMOGLOBIN INCREASED

REACTIONS (2)
  - Intraductal papillary mucinous neoplasm [Unknown]
  - Glucose tolerance test abnormal [Unknown]
